FAERS Safety Report 10660712 (Version 1)
Quarter: 2014Q4

REPORT INFORMATION
  Report Type: Report from Study
  Country: DE (occurrence: DE)
  Receive Date: 20141217
  Receipt Date: 20141217
  Transmission Date: 20150529
  Serious: Yes (Other)
  Sender: FDA-Public Use
  Company Number: DE-MYLANLABS-2014M1014582

PATIENT

DRUGS (4)
  1. CLINDAMYCIN [Concomitant]
     Active Substance: CLINDAMYCIN\CLINDAMYCIN PHOSPHATE
     Route: 048
  2. PLASMOTRIM [Suspect]
     Active Substance: ARTESUNATE
     Indication: PLASMODIUM FALCIPARUM INFECTION
     Dosage: 5 DOSES OF 200MG
     Route: 054
  3. QUININE [Suspect]
     Active Substance: QUININE
     Dosage: 10MG QUININE DIHYDROCHLORIDE/KG EVERY 8HOURS (8.2MG OF QUININE BASE)
     Route: 042
  4. QUININE [Suspect]
     Active Substance: QUININE
     Indication: PLASMODIUM FALCIPARUM INFECTION
     Dosage: 20MG QUININE DIHYDROCHLORIDE/KG OVER 4 HOURS (16.4MG QUININE BASE)
     Route: 042

REACTIONS (3)
  - Haemolysis [Unknown]
  - Electrocardiogram QT prolonged [Unknown]
  - Acute kidney injury [Unknown]
